FAERS Safety Report 24077101 (Version 1)
Quarter: 2024Q3

REPORT INFORMATION
  Report Type: Spontaneous
  Country: TR (occurrence: TR)
  Receive Date: 20240711
  Receipt Date: 20240711
  Transmission Date: 20241017
  Serious: No
  Sender: PIERRE FABRE MEDICAMENT
  Company Number: TR-PFM-2023-05113

PATIENT
  Age: 57 Year
  Sex: Male

DRUGS (9)
  1. PROPRANOLOL [Suspect]
     Active Substance: PROPRANOLOL HYDROCHLORIDE
     Indication: Nervous system disorder
     Dosage: 20 MG/DAY
     Route: 065
  2. PROPRANOLOL [Suspect]
     Active Substance: PROPRANOLOL HYDROCHLORIDE
     Indication: Off label use
     Dosage: 30 MG/DAY
     Route: 065
  3. PIRACETAM [Concomitant]
     Active Substance: PIRACETAM
     Indication: Nervous system disorder
     Dosage: 60 G/DAY
     Route: 065
  4. PIRACETAM [Concomitant]
     Active Substance: PIRACETAM
     Dosage: 45 G/DAY
     Route: 065
  5. PIRACETAM [Concomitant]
     Active Substance: PIRACETAM
     Dosage: 30 G/DAY
     Route: 065
  6. DIAZEPAM [Concomitant]
     Active Substance: DIAZEPAM
     Indication: Nervous system disorder
     Dosage: 50 MG WAS STARTED AND TITRATED DOWN BY 5 MG PER DAY AND DISCONTINUED
     Route: 065
  7. THIAMINE [Concomitant]
     Active Substance: THIAMINE
     Indication: Nervous system disorder
     Dosage: 600 MG
     Route: 051
  8. THIAMINE [Concomitant]
     Active Substance: THIAMINE
     Dosage: 250 MG
     Route: 048
  9. ASPIRIN [Concomitant]
     Active Substance: ASPIRIN
     Indication: Nervous system disorder
     Dosage: 100 MG/DAY
     Route: 065

REACTIONS (3)
  - Product use issue [Unknown]
  - Product use in unapproved indication [Unknown]
  - Off label use [Unknown]
